FAERS Safety Report 15534385 (Version 1)
Quarter: 2018Q4

REPORT INFORMATION
  Report Type: Spontaneous
  Country: FR (occurrence: FR)
  Receive Date: 20181021
  Receipt Date: 20181021
  Transmission Date: 20190205
  Serious: Yes (Hospitalization)
  Sender: FDA-Public Use
  Company Number: PHHY2018FR131954

PATIENT
  Age: 73 Year
  Sex: Female
  Weight: 55 kg

DRUGS (2)
  1. TIXTAR [Suspect]
     Active Substance: RIFAXIMIN
     Indication: HEPATIC ENCEPHALOPATHY
     Dosage: 2 DF, QD
     Route: 048
  2. FEMARA [Suspect]
     Active Substance: LETROZOLE
     Indication: BREAST CANCER
     Dosage: 1 DF, QD
     Route: 048

REACTIONS (2)
  - Agranulocytosis [Recovered/Resolved]
  - Bronchopulmonary aspergillosis [Not Recovered/Not Resolved]

NARRATIVE: CASE EVENT DATE: 201808
